FAERS Safety Report 8000234-3 (Version None)
Quarter: 2011Q4

REPORT INFORMATION
  Report Type: 
  Country: None (occurrence: None)
  Receive Date: 20111123
  Receipt Date: 20111011
  Transmission Date: 20120403
  Serious: Yes (Other)
  Sender: FDA-Public Use
  Company Number: 336995

PATIENT
  Age: 47 Year
  Sex: Female
  Weight: 51.7 kg

DRUGS (3)
  1. VICTOZA [Suspect]
     Indication: TYPE 2 DIABETES MELLITUS
     Dosage: , SUBCUTANEOUS, 1.8 MG, QD , SUBCUTANEOUS
     Route: 058
     Dates: start: 20110301
  2. VALTREX [Concomitant]
  3. DIFLUCAN [Concomitant]

REACTIONS (5)
  - OEDEMA PERIPHERAL [None]
  - BLOOD GLUCOSE INCREASED [None]
  - DIARRHOEA [None]
  - SKIN DISORDER [None]
  - URTICARIA [None]
